FAERS Safety Report 8537147-4 (Version None)
Quarter: 2012Q3

REPORT INFORMATION
  Report Type: 
  Country: None (occurrence: None)
  Receive Date: 20120725
  Receipt Date: 20120713
  Transmission Date: 20120928
  Serious: Yes (Life-Threatening, Hospitalization, Other)
  Sender: FDA-Public Use
  Company Number: FR-BRISTOL-MYERS SQUIBB COMPANY-16768483

PATIENT
  Age: 79 Year
  Sex: Female

DRUGS (4)
  1. IRBESARTAN [Suspect]
     Route: 048
     Dates: start: 20090101, end: 20120614
  2. ULORIC [Suspect]
     Indication: GOUT
     Route: 048
     Dates: start: 20111001, end: 20120614
  3. BISOPROLOL FUMARATE [Concomitant]
     Route: 048
     Dates: start: 20070101, end: 20120614
  4. SIMVASTATIN [Concomitant]
     Route: 048
     Dates: start: 20090101, end: 20120614

REACTIONS (6)
  - DEHYDRATION [None]
  - DIARRHOEA [None]
  - RENAL FAILURE ACUTE [None]
  - NAUSEA [None]
  - SHOCK [None]
  - VOMITING [None]
